FAERS Safety Report 7494221-1 (Version None)
Quarter: 2011Q2

REPORT INFORMATION
  Report Type: 
  Country: None (occurrence: None)
  Receive Date: 20110520
  Receipt Date: 20110517
  Transmission Date: 20111010
  Serious: Yes (Death)
  Sender: FDA-Public Use
  Company Number: JP-SANOFI-AVENTIS-2010SA056661

PATIENT
  Age: 70 Year
  Sex: Male
  Weight: 56 kg

DRUGS (9)
  1. URSO 250 [Concomitant]
     Indication: PROPHYLAXIS
     Route: 048
     Dates: start: 20080902, end: 20091207
  2. GRANISETRON HCL [Concomitant]
     Indication: PROPHYLAXIS
     Route: 041
     Dates: start: 20090623, end: 20091127
  3. TAXOTERE [Suspect]
     Route: 041
     Dates: start: 20090908, end: 20090908
  4. TAXOTERE [Suspect]
     Indication: PROSTATE CANCER
     Route: 041
     Dates: start: 20090623, end: 20090623
  5. DEXAMETHASONE [Concomitant]
     Indication: PROPHYLAXIS
     Route: 041
     Dates: start: 20090623, end: 20091127
  6. TAXOTERE [Suspect]
     Route: 041
     Dates: start: 20091127, end: 20091127
  7. GRAN [Suspect]
     Indication: PROPHYLAXIS
     Route: 058
     Dates: start: 20090915, end: 20091207
  8. DECADRON [Concomitant]
     Indication: PROSTATE CANCER
     Route: 048
     Dates: start: 20091006, end: 20091207
  9. LANSOPRAZOLE [Concomitant]
     Indication: PROPHYLAXIS
     Route: 048
     Dates: start: 20080401, end: 20091207

REACTIONS (3)
  - INTERSTITIAL LUNG DISEASE [None]
  - WHITE BLOOD CELL COUNT DECREASED [None]
  - BONE MARROW FAILURE [None]
